FAERS Safety Report 23361465 (Version 1)
Quarter: 2024Q1

REPORT INFORMATION
  Report Type: Spontaneous
  Country: US (occurrence: US)
  Receive Date: 20240103
  Receipt Date: 20240103
  Transmission Date: 20240409
  Serious: No
  Sender: FDA-Public Use
  Company Number: US-HERON THERAPEUTICS, INC-HRTX-2023-000990

PATIENT
  Age: 39 Year
  Sex: Male

DRUGS (1)
  1. ZYNRELEF [Suspect]
     Active Substance: BUPIVACAINE\MELOXICAM
     Indication: Postoperative analgesia
     Dosage: 7 MILLILITER, SINGLE
     Route: 065
     Dates: start: 20230727, end: 20230727

REACTIONS (2)
  - Wound dehiscence [Unknown]
  - Post procedural drainage [Unknown]

NARRATIVE: CASE EVENT DATE: 20230830
